FAERS Safety Report 4661959-0 (Version None)
Quarter: 2005Q2

REPORT INFORMATION
  Report Type: 
  Country: None (occurrence: None)
  Receive Date: 20050511
  Receipt Date: 20050511
  Transmission Date: 20051028
  Serious: Yes (Hospitalization)
  Sender: FDA-Public Use
  Company Number: None

PATIENT
  Age: 77 Year
  Sex: Male

DRUGS (12)
  1. TRAMADOL HCL [Suspect]
     Indication: PAIN
     Dosage: 50 MG BID PRN
     Dates: start: 20040928
  2. ASPIRIN [Suspect]
  3. HYPROXYZINE [Concomitant]
  4. TEMAZEPAM [Concomitant]
  5. NPH INSULIN [Concomitant]
  6. MS CONTIN [Concomitant]
  7. LORATADINE [Concomitant]
  8. BUMETANIDE [Concomitant]
  9. GABAPENTIN [Concomitant]
  10. IRBESARTAN [Concomitant]
  11. OMEPRAZOLE [Concomitant]
  12. FESO4 [Concomitant]

REACTIONS (1)
  - RASH MACULO-PAPULAR [None]
